FAERS Safety Report 7076561-3 (Version None)
Quarter: 2010Q4

REPORT INFORMATION
  Report Type: 
  Country: None (occurrence: None)
  Receive Date: 20101101
  Receipt Date: 20101026
  Transmission Date: 20110411
  Serious: Yes (Other)
  Sender: FDA-Public Use
  Company Number: US-PFIZER INC-2010136999

PATIENT
  Sex: Female
  Weight: 100.68 kg

DRUGS (13)
  1. CHANTIX [Suspect]
     Indication: SMOKING CESSATION THERAPY
     Dosage: 0.5 MG, 1X/DAY
     Route: 048
     Dates: start: 20101004
  2. CHANTIX [Suspect]
     Dosage: 1 MG, 2X/DAY
     Route: 048
  3. EFFEXOR [Concomitant]
     Dosage: UNK
  4. LASIX [Concomitant]
     Dosage: UNK
  5. PROTONIX [Concomitant]
     Dosage: UNK
  6. SYNTHROID [Concomitant]
     Dosage: UNK
  7. ARICEPT [Concomitant]
     Dosage: UNK
  8. ESTRADIOL [Concomitant]
     Dosage: UNK
  9. MONTELUKAST SODIUM [Concomitant]
     Dosage: UNK
  10. METOPROLOL [Concomitant]
     Dosage: UNK
  11. XANAX [Concomitant]
     Dosage: UNK
  12. SEROQUEL [Concomitant]
     Dosage: UNK
  13. REQUIP [Concomitant]
     Indication: LIMB DISCOMFORT
     Dosage: UNK

REACTIONS (7)
  - ERYTHEMA [None]
  - HALLUCINATION [None]
  - ILL-DEFINED DISORDER [None]
  - OROPHARYNGEAL BLISTERING [None]
  - PARANOIA [None]
  - SKIN EXFOLIATION [None]
  - TONGUE BLISTERING [None]
